FAERS Safety Report 11700789 (Version 1)
Quarter: 2015Q4

REPORT INFORMATION
  Report Type: Spontaneous
  Country: US (occurrence: None)
  Receive Date: 20151104
  Receipt Date: 20151104
  Transmission Date: 20160304
  Serious: No
  Sender: FDA-Public Use
  Company Number: None

PATIENT
  Age: 43 Year
  Sex: Female

DRUGS (7)
  1. MONTELUKAST [Concomitant]
     Active Substance: MONTELUKAST SODIUM
  2. AFINITOR [Suspect]
     Active Substance: EVEROLIMUS
     Indication: HEPATIC CANCER
     Route: 048
     Dates: start: 201307
  3. BENZONATATE. [Concomitant]
     Active Substance: BENZONATATE
  4. SODIUM BICAR [Concomitant]
  5. AZELASTINE [Concomitant]
     Active Substance: AZELASTINE
  6. CEFUROXIME. [Concomitant]
     Active Substance: CEFUROXIME
  7. CHLORHTALID [Concomitant]

REACTIONS (2)
  - Memory impairment [None]
  - Drug dose omission [None]
